FAERS Safety Report 12661089 (Version 2)
Quarter: 2016Q3

REPORT INFORMATION
  Report Type: Spontaneous
  Country: US (occurrence: US)
  Receive Date: 20160817
  Receipt Date: 20160901
  Transmission Date: 20161109
  Serious: No
  Sender: FDA-Public Use
  Company Number: US-RELYPSA-RLY2016000550

PATIENT
  Age: 75 Year
  Sex: Male

DRUGS (14)
  1. ASPIRIN 81 [Concomitant]
     Active Substance: ASPIRIN
  2. SERTRALINE HCL [Concomitant]
     Active Substance: SERTRALINE HYDROCHLORIDE
  3. MAGNESIUM [Concomitant]
     Active Substance: MAGNESIUM
  4. XANAX [Concomitant]
     Active Substance: ALPRAZOLAM
  5. VELTASSA [Suspect]
     Active Substance: PATIROMER
     Indication: HYPERKALAEMIA
     Dosage: 8.4 G, QD
     Route: 048
     Dates: start: 20160413
  6. IRON [Concomitant]
     Active Substance: IRON
  7. PROTONIX                           /00661201/ [Concomitant]
     Active Substance: OMEPRAZOLE
  8. ATORVASTATIN CALCIUM. [Concomitant]
     Active Substance: ATORVASTATIN CALCIUM
  9. CALCITRIOL. [Concomitant]
     Active Substance: CALCITRIOL
  10. ATIVAN [Concomitant]
     Active Substance: LORAZEPAM
  11. LISINOPRIL. [Concomitant]
     Active Substance: LISINOPRIL
  12. DRISDOL [Concomitant]
     Active Substance: ERGOCALCIFEROL
  13. NORVASC [Concomitant]
     Active Substance: AMLODIPINE BESYLATE
  14. LASIX [Concomitant]
     Active Substance: FUROSEMIDE

REACTIONS (2)
  - Constipation [Unknown]
  - Muscle spasms [Unknown]

NARRATIVE: CASE EVENT DATE: 201604
